FAERS Safety Report 10111137 (Version 2)
Quarter: 2014Q2

REPORT INFORMATION
  Report Type: Spontaneous
  Country: US (occurrence: None)
  Receive Date: 20140421
  Receipt Date: 20140429
  Transmission Date: 20141212
  Serious: Yes (Other)
  Sender: FDA-Public Use
  Company Number: AEGR000270

PATIENT
  Age: 53 Year
  Sex: Male
  Weight: 97.5 kg

DRUGS (8)
  1. JUXTAPID [Suspect]
     Indication: TYPE IIA HYPERLIPIDAEMIA
     Route: 048
     Dates: start: 201312, end: 20140102
  2. GLIMEPIRIDE (GLIMEPIRIDE) [Concomitant]
  3. ZETIA (EZETIMIBE) [Concomitant]
  4. JANUVIA (SITAGLIPTIN PHOSPHATE) [Concomitant]
  5. SKELAXIN (METAXALONE) [Concomitant]
  6. GABAPENTIN (GABAPENTIN) [Concomitant]
  7. LACTOBACILLUS ACIDOPHILUS (LACTOBACILLUS ACIDOPHILUS) [Concomitant]
  8. ASPIRIN (ACETYLSALICYLIC ACID) [Concomitant]

REACTIONS (7)
  - Sleep disorder [None]
  - Blood glucose decreased [None]
  - Functional gastrointestinal disorder [None]
  - Inappropriate schedule of drug administration [None]
  - Constipation [None]
  - Dizziness [None]
  - Hepatic enzyme increased [None]
